FAERS Safety Report 5440539-3 (Version None)
Quarter: 2007Q3

REPORT INFORMATION
  Report Type: 
  Country: None (occurrence: None)
  Receive Date: 20070831
  Receipt Date: 20070822
  Transmission Date: 20080115
  Serious: Yes (Congenital Anomaly)
  Sender: FDA-Public Use
  Company Number: US-ABBOTT-07P-163-0378835-00

PATIENT

DRUGS (11)
  1. KALETRA [Suspect]
     Indication: DRUG EXPOSURE DURING PREGNANCY
     Route: 064
     Dates: start: 20070101, end: 20070215
  2. NORVIR [Suspect]
     Indication: DRUG EXPOSURE DURING PREGNANCY
     Route: 064
     Dates: start: 20070315, end: 20070330
  3. NORVIR [Suspect]
     Route: 064
     Dates: start: 20070501, end: 20070515
  4. TRUVADA [Suspect]
     Indication: DRUG EXPOSURE DURING PREGNANCY
     Route: 064
     Dates: start: 20070101, end: 20070215
  5. TRUVADA [Suspect]
     Route: 064
     Dates: start: 20070315, end: 20070330
  6. NELFINAVIR MESILATE [Suspect]
     Indication: DRUG EXPOSURE DURING PREGNANCY
     Route: 064
     Dates: start: 20070101, end: 20070215
  7. LAMIVUDINE + ZIDOVUDINE [Suspect]
     Indication: DRUG EXPOSURE DURING PREGNANCY
     Route: 064
     Dates: start: 20070315, end: 20070330
  8. LAMIVUDINE + ZIDOVUDINE [Suspect]
     Route: 064
     Dates: start: 20070501, end: 20070515
  9. LAMIVUDINE + ZIDOVUDINE [Suspect]
     Route: 064
     Dates: start: 20070808, end: 20070809
  10. ATAZANAVIR SULFATE [Suspect]
     Indication: DRUG EXPOSURE DURING PREGNANCY
     Route: 064
     Dates: start: 20070501, end: 20070515
  11. NELFINAVIR [Suspect]
     Indication: DRUG EXPOSURE DURING PREGNANCY
     Route: 064
     Dates: start: 20070808, end: 20070809

REACTIONS (2)
  - DRUG EXPOSURE DURING PREGNANCY [None]
  - TALIPES [None]
